FAERS Safety Report 24137874 (Version 1)
Quarter: 2024Q3

REPORT INFORMATION
  Report Type: Spontaneous
  Country: US (occurrence: US)
  Receive Date: 20240725
  Receipt Date: 20240725
  Transmission Date: 20241016
  Serious: No
  Sender: ELI LILLY AND CO
  Company Number: US-ELI_LILLY_AND_COMPANY-US202406018005

PATIENT
  Age: 10 Year
  Sex: Female

DRUGS (3)
  1. HUMATROPE [Suspect]
     Active Substance: SOMATROPIN
     Indication: Growth hormone deficiency
     Dosage: 1 MG, UNKNOWN
     Route: 058
     Dates: start: 202310
  2. HUMATROPE [Suspect]
     Active Substance: SOMATROPIN
     Indication: Short stature
     Dosage: 1 MG, UNKNOWN
     Route: 058
     Dates: start: 202310
  3. HUMATROPE [Suspect]
     Active Substance: SOMATROPIN
     Dosage: 1 MG, UNKNOWN
     Route: 058
     Dates: start: 202310

REACTIONS (2)
  - Drug ineffective [Unknown]
  - Wrong technique in product usage process [Unknown]
